FAERS Safety Report 5984393-X (Version None)
Quarter: 2008Q4

REPORT INFORMATION
  Report Type: 
  Country: None (occurrence: None)
  Receive Date: 20081208
  Receipt Date: 20080312
  Transmission Date: 20090506
  Serious: No
  Sender: FDA-Public Use
  Company Number: US-AMGEN-KDL266054

PATIENT
  Sex: Male
  Weight: 61.3 kg

DRUGS (5)
  1. ENBREL [Suspect]
     Indication: RHEUMATOID ARTHRITIS
     Route: 058
     Dates: start: 20071001
  2. METHOTREXATE [Concomitant]
     Route: 048
  3. FOLIC ACID [Concomitant]
     Route: 048
  4. ISONIAZID [Concomitant]
  5. CALCIUM [Concomitant]
     Route: 048

REACTIONS (3)
  - HYPERSENSITIVITY [None]
  - LACRIMATION INCREASED [None]
  - NASOPHARYNGITIS [None]
